FAERS Safety Report 8621981-6 (Version None)
Quarter: 2012Q3

REPORT INFORMATION
  Report Type: 
  Country: None (occurrence: None)
  Receive Date: 20120823
  Receipt Date: 20120823
  Transmission Date: 20120928
  Serious: Yes (Hospitalization, Disabling)
  Sender: FDA-Public Use
  Company Number: None

PATIENT
  Age: 79 Year
  Sex: Male
  Weight: 95.2554 kg

DRUGS (1)
  1. XARELTO [Suspect]
     Dosage: 1 TABLET , TWICE A DAY, PO
     Route: 048
     Dates: start: 20120212, end: 20120510

REACTIONS (3)
  - ATRIAL FIBRILLATION [None]
  - RECTAL HAEMORRHAGE [None]
  - EPISTAXIS [None]
